FAERS Safety Report 23149763 (Version 1)
Quarter: 2023Q4

REPORT INFORMATION
  Report Type: Spontaneous
  Country: US (occurrence: US)
  Receive Date: 20231106
  Receipt Date: 20231106
  Transmission Date: 20240110
  Serious: No
  Sender: FDA-Public Use
  Company Number: US-JNJFOC-20230330859

PATIENT
  Age: 63 Year
  Sex: Female
  Weight: 104.32 kg

DRUGS (18)
  1. TYLENOL [Suspect]
     Active Substance: ACETAMINOPHEN
     Indication: Arthritis
     Route: 065
  2. HUMIRA [Suspect]
     Active Substance: ADALIMUMAB
     Indication: Rheumatoid arthritis
     Route: 058
     Dates: start: 20160627
  3. CODEINE [Suspect]
     Active Substance: CODEINE
     Indication: Product used for unknown indication
     Route: 065
  4. LOSARTAN POTASSIUM [Concomitant]
     Active Substance: LOSARTAN POTASSIUM
     Indication: Hypertension
     Route: 065
  5. ATORVASTATIN CALCIUM [Concomitant]
     Active Substance: ATORVASTATIN CALCIUM
     Indication: Blood cholesterol increased
     Route: 065
  6. ERGOCALCIFEROL [Concomitant]
     Active Substance: ERGOCALCIFEROL
     Indication: Blood calcium decreased
     Route: 065
  7. TIZANIDINE [Concomitant]
     Active Substance: TIZANIDINE
     Indication: Muscle spasms
     Route: 065
  8. PANTOPRAZOLE [Concomitant]
     Active Substance: PANTOPRAZOLE
     Indication: Gastrooesophageal reflux disease
     Route: 065
  9. TRAZODONE [Concomitant]
     Active Substance: TRAZODONE HYDROCHLORIDE
     Indication: Insomnia
     Route: 065
  10. OXYBUTYNIN [Concomitant]
     Active Substance: OXYBUTYNIN
     Indication: Hypertonic bladder
     Route: 065
  11. FAMOTIDINE [Concomitant]
     Active Substance: FAMOTIDINE
     Indication: Gastrooesophageal reflux disease
     Route: 065
  12. FERROUS SULFATE [Concomitant]
     Active Substance: FERROUS SULFATE
     Indication: Blood iron abnormal
     Route: 065
  13. LEVOCETIRIZINE [Concomitant]
     Active Substance: LEVOCETIRIZINE
     Indication: Multiple allergies
     Route: 065
  14. SERTRALINE [Concomitant]
     Active Substance: SERTRALINE HYDROCHLORIDE
     Indication: Mental disorder
     Route: 065
  15. PROMETHAZINE [Concomitant]
     Active Substance: PROMETHAZINE HYDROCHLORIDE
     Indication: Nausea
     Route: 065
  16. MONTELUKAST [Concomitant]
     Active Substance: MONTELUKAST SODIUM
     Indication: Asthma
     Route: 065
  17. ARIPIPRAZOLE [Concomitant]
     Active Substance: ARIPIPRAZOLE
     Indication: Schizophrenia
  18. THERA-M [Concomitant]
     Indication: Blood iron abnormal

REACTIONS (11)
  - Pain in extremity [Recovered/Resolved]
  - Asthma [Recovering/Resolving]
  - Dyspepsia [Not Recovered/Not Resolved]
  - Arthralgia [Not Recovered/Not Resolved]
  - Joint swelling [Not Recovered/Not Resolved]
  - Muscle spasms [Not Recovered/Not Resolved]
  - Somnolence [Recovered/Resolved]
  - Peripheral swelling [Not Recovered/Not Resolved]
  - Adverse event [Not Recovered/Not Resolved]
  - Oedema peripheral [Unknown]
  - Dyspnoea [Recovering/Resolving]

NARRATIVE: CASE EVENT DATE: 20220101
